FAERS Safety Report 9198947 (Version 1)
Quarter: 2013Q1

REPORT INFORMATION
  Report Type: Spontaneous
  Country: BR (occurrence: BR)
  Receive Date: 20130329
  Receipt Date: 20130329
  Transmission Date: 20140127
  Serious: Yes (Hospitalization)
  Sender: FDA-Public Use
  Company Number: BR-009507513-1303BRA013244

PATIENT
  Age: 31 None
  Sex: Female
  Weight: 83 kg

DRUGS (2)
  1. NUVARING [Suspect]
     Indication: CONTRACEPTION
     Dosage: UNK
     Route: 067
     Dates: start: 2009
  2. NUVARING [Suspect]
     Indication: POLYCYSTIC OVARIES

REACTIONS (5)
  - Benign tumour excision [Recovered/Resolved]
  - Benign neoplasm [Recovered/Resolved]
  - Infection [Unknown]
  - Decreased immune responsiveness [Unknown]
  - Off label use [Unknown]
